FAERS Safety Report 6717841-8 (Version None)
Quarter: 2010Q2

REPORT INFORMATION
  Report Type: 
  Country: None (occurrence: None)
  Receive Date: 20100510
  Receipt Date: 20100503
  Transmission Date: 20101027
  Serious: Yes (Hospitalization)
  Sender: FDA-Public Use
  Company Number: TW-MERCK-1005TWN00001

PATIENT
  Age: 78 Year
  Sex: Female
  Weight: 49 kg

DRUGS (11)
  1. FOSAMAX PLUS D [Suspect]
     Indication: OSTEOPOROSIS
     Route: 048
     Dates: start: 20100114, end: 20100201
  2. FOSAMAX PLUS D [Suspect]
     Route: 048
     Dates: start: 20100308
  3. FUROSEMIDE [Concomitant]
     Indication: MYOCARDIAL ISCHAEMIA
     Route: 048
     Dates: start: 20100105
  4. CARVEDILOL [Concomitant]
     Indication: MYOCARDIAL ISCHAEMIA
     Route: 048
     Dates: start: 20100105
  5. CLOPIDOGREL BISULFATE [Concomitant]
     Indication: ANTICOAGULANT THERAPY
     Route: 048
     Dates: start: 20100105
  6. ACETAMINOPHEN [Concomitant]
     Indication: ANALGESIC THERAPY
     Route: 048
     Dates: start: 20100105
  7. DOMPERIDONE [Concomitant]
     Indication: PEPTIC ULCER
     Route: 048
     Dates: start: 20100128
  8. MAGNESIUM OXIDE [Concomitant]
     Route: 048
     Dates: start: 20100128
  9. RIVASTIGMINE [Concomitant]
     Indication: SENILE DEMENTIA
     Route: 048
     Dates: start: 20100203
  10. ESTAZOLAM [Concomitant]
     Indication: INSOMNIA
     Route: 048
     Dates: start: 20100203
  11. PAROXETINE [Concomitant]
     Indication: DEPRESSION
     Route: 048
     Dates: start: 20100128

REACTIONS (1)
  - FEMUR FRACTURE [None]
